FAERS Safety Report 18725532 (Version 1)
Quarter: 2021Q1

REPORT INFORMATION
  Report Type: Spontaneous
  Country: US (occurrence: US)
  Receive Date: 20210111
  Receipt Date: 20210111
  Transmission Date: 20210419
  Serious: Yes (Life-Threatening, Hospitalization)
  Sender: FDA-Public Use
  Company Number: US-FRESENIUS KABI-FK202100330

PATIENT
  Age: 2 Year
  Sex: Male

DRUGS (8)
  1. BUSULFAN. [Suspect]
     Active Substance: BUSULFAN
     Indication: ACUTE MYELOID LEUKAEMIA REFRACTORY
     Route: 065
  2. IBUPROFEN. [Concomitant]
     Active Substance: IBUPROFEN
     Indication: PERICARDIAL EFFUSION
  3. ACICLOVIR [Concomitant]
     Active Substance: ACYCLOVIR
     Indication: PERICARDIAL EFFUSION
  4. FLUDARABINE [Suspect]
     Active Substance: FLUDARABINE PHOSPHATE
     Indication: ACUTE MYELOID LEUKAEMIA REFRACTORY
     Route: 065
  5. IBUPROFEN. [Concomitant]
     Active Substance: IBUPROFEN
     Indication: ENTEROCOCCAL BACTERAEMIA
     Route: 065
  6. CEFEPIME [Concomitant]
     Active Substance: CEFEPIME HYDROCHLORIDE
     Indication: ENTEROCOCCAL BACTERAEMIA
     Route: 065
  7. CEFEPIME [Concomitant]
     Active Substance: CEFEPIME HYDROCHLORIDE
     Indication: PERICARDIAL EFFUSION
  8. ACICLOVIR [Concomitant]
     Active Substance: ACYCLOVIR
     Indication: ENTEROCOCCAL BACTERAEMIA
     Route: 065

REACTIONS (5)
  - Acute kidney injury [Recovering/Resolving]
  - Engraftment syndrome [Unknown]
  - Thrombotic microangiopathy [Unknown]
  - Tubulointerstitial nephritis [Recovering/Resolving]
  - Graft versus host disease [Unknown]
